FAERS Safety Report 7083529-X (Version None)
Quarter: 2010Q4

REPORT INFORMATION
  Report Type: 
  Country: None (occurrence: None)
  Receive Date: 20101104
  Receipt Date: 20101022
  Transmission Date: 20110411
  Serious: No
  Sender: FDA-Public Use
  Company Number: JP-ROCHE-718431

PATIENT
  Sex: Male
  Weight: 70 kg

DRUGS (4)
  1. PEGASYS [Suspect]
     Route: 058
     Dates: start: 20100426, end: 20100426
  2. PEGASYS [Suspect]
     Route: 058
     Dates: start: 20100506, end: 20100506
  3. PEGASYS [Suspect]
     Route: 058
     Dates: start: 20100519, end: 20100519
  4. THYRADIN [Concomitant]
     Route: 048
     Dates: start: 20100426

REACTIONS (1)
  - ORAL LICHEN PLANUS [None]
